FAERS Safety Report 22121758 (Version 1)
Quarter: 2023Q1

REPORT INFORMATION
  Report Type: Spontaneous
  Country: US (occurrence: US)
  Receive Date: 20230321
  Receipt Date: 20230321
  Transmission Date: 20230417
  Serious: Yes (Other)
  Sender: FDA-Public Use
  Company Number: US-ALEMBIC PHARMACUETICALS LIMITED-2023SCAL000107

PATIENT

DRUGS (2)
  1. DULOXETINE HYDROCHLORIDE [Interacting]
     Active Substance: DULOXETINE HYDROCHLORIDE
     Indication: Product used for unknown indication
     Dosage: UNK
     Route: 065
  2. FLECAINIDE [Interacting]
     Active Substance: FLECAINIDE
     Indication: Atrial fibrillation
     Dosage: 150 MILLIGRAM, QD FOR 4 YEARS
     Route: 065

REACTIONS (9)
  - Electrocardiogram QRS complex prolonged [Unknown]
  - Atrial fibrillation [Unknown]
  - Ventricular tachycardia [Unknown]
  - Syncope [Unknown]
  - Troponin T increased [Unknown]
  - Drug level increased [Unknown]
  - Dizziness [Unknown]
  - Malaise [Unknown]
  - Drug interaction [Unknown]
